FAERS Safety Report 9060605 (Version 2)
Quarter: 2013Q1

REPORT INFORMATION
  Report Type: Report from Study
  Country: DE (occurrence: IL)
  Receive Date: 20130212
  Receipt Date: 20130221
  Transmission Date: 20140127
  Serious: Yes (Death, Life-Threatening, Hospitalization, Other)
  Sender: FDA-Public Use
  Company Number: DE-ACTELION-A-US2013-78891

PATIENT
  Age: 66 Year
  Sex: Female

DRUGS (1)
  1. VENTAVIS [Suspect]
     Indication: PULMONARY HYPERTENSION
     Dosage: UNK, VIA RESPIRATION MACHINE BY SIDE STREAM, 6 TIMES A DAY
     Route: 055
     Dates: start: 20130116

REACTIONS (7)
  - Death [Fatal]
  - Mechanical ventilation [Not Recovered/Not Resolved]
  - Angiopathy [Recovered/Resolved with Sequelae]
  - Extremity necrosis [Recovered/Resolved with Sequelae]
  - Amputation [Recovered/Resolved with Sequelae]
  - Myocardial infarction [Not Recovered/Not Resolved]
  - Stupor [Not Recovered/Not Resolved]
